FAERS Safety Report 7648633-3 (Version None)
Quarter: 2011Q3

REPORT INFORMATION
  Report Type: 
  Country: None (occurrence: None)
  Receive Date: 20110801
  Receipt Date: 20110720
  Transmission Date: 20111222
  Serious: Yes (Other)
  Sender: FDA-Public Use
  Company Number: PHHY2011US54856

PATIENT
  Sex: Female

DRUGS (5)
  1. THEOPHYLLINE [Concomitant]
     Dosage: 200 MG, BID
     Route: 048
  2. FEMARA [Suspect]
     Dosage: 2.5 MG, QD
     Route: 048
     Dates: start: 20081201
  3. ATROPINE [Concomitant]
     Dosage: 2 OT, TID
  4. XALATAN [Concomitant]
     Dosage: 1 DRP, QHS AT RIGHT EYE
  5. ZOCOR [Concomitant]
     Dosage: 20 MG, 1/2 TABLET QD
     Route: 048

REACTIONS (1)
  - MACULAR DEGENERATION [None]
